FAERS Safety Report 4628096-2 (Version None)
Quarter: 2005Q2

REPORT INFORMATION
  Report Type: 
  Country: None (occurrence: None)
  Receive Date: 20050406
  Receipt Date: 20050214
  Transmission Date: 20051028
  Serious: Yes (Other)
  Sender: FDA-Public Use
  Company Number: US-GLAXOSMITHKLINE-A0545504A

PATIENT
  Age: 43 Year
  Sex: Male
  Weight: 68.2 kg

DRUGS (2)
  1. AVANDAMET [Suspect]
     Indication: DIABETES MELLITUS NON-INSULIN-DEPENDENT
     Dosage: 2MG TWICE PER DAY
     Route: 048
     Dates: start: 20041201, end: 20050201
  2. GLUCOTROL [Concomitant]
     Indication: DRUG USE FOR UNKNOWN INDICATION
     Dosage: 10MG TWICE PER DAY
     Route: 048

REACTIONS (3)
  - DIABETES MELLITUS INADEQUATE CONTROL [None]
  - HYPERTHYROIDISM [None]
  - WEIGHT DECREASED [None]
